FAERS Safety Report 12760408 (Version 1)
Quarter: 2016Q3

REPORT INFORMATION
  Report Type: Spontaneous
  Country: US (occurrence: US)
  Receive Date: 20160919
  Receipt Date: 20160919
  Transmission Date: 20161109
  Serious: No
  Sender: FDA-Public Use
  Company Number: US-BAUSCH-BL-2015-031174

PATIENT
  Age: 70 Year
  Sex: Female

DRUGS (1)
  1. ERYTHROMYCIN OPHTHALMIC OINTMENT USP 0.5% [Suspect]
     Active Substance: ERYTHROMYCIN
     Indication: PINGUECULA
     Route: 047
     Dates: start: 201512, end: 20151229

REACTIONS (1)
  - Therapeutic response unexpected [Unknown]
